FAERS Safety Report 7622543-X (Version None)
Quarter: 2011Q3

REPORT INFORMATION
  Report Type: 
  Country: None (occurrence: None)
  Receive Date: 20110719
  Receipt Date: 20110719
  Transmission Date: 20111222
  Serious: No
  Sender: FDA-Public Use
  Company Number: None

PATIENT
  Age: 52 Year
  Sex: Male
  Weight: 88.4514 kg

DRUGS (2)
  1. LEVAQUIN [Suspect]
     Indication: PNEUMONIA
     Dosage: BID IV
     Route: 042
     Dates: start: 20110504, end: 20110506
  2. CIPROFLOXACIN HCL [Suspect]
     Indication: URINARY TRACT INFECTION
     Dosage: PO
     Route: 048
     Dates: start: 20110105, end: 20110106

REACTIONS (15)
  - INADEQUATE ANALGESIA [None]
  - PNEUMONIA [None]
  - WHEELCHAIR USER [None]
  - TREMOR [None]
  - GAIT DISTURBANCE [None]
  - TEMPERATURE REGULATION DISORDER [None]
  - TENDON PAIN [None]
  - MYOCLONUS [None]
  - TENDON RUPTURE [None]
  - NEUROPATHY PERIPHERAL [None]
  - PAIN IN EXTREMITY [None]
  - CONVULSION [None]
  - TOXICITY TO VARIOUS AGENTS [None]
  - NERVOUS SYSTEM DISORDER [None]
  - MEMORY IMPAIRMENT [None]
